FAERS Safety Report 6082328-5 (Version None)
Quarter: 2009Q1

REPORT INFORMATION
  Report Type: 
  Country: None (occurrence: None)
  Receive Date: 20090130
  Receipt Date: 20081110
  Transmission Date: 20090719
  Serious: Yes (Other)
  Sender: FDA-Public Use
  Company Number: 596268

PATIENT
  Age: 44 Year
  Sex: Male

DRUGS (2)
  1. RIBAVIRIN [Suspect]
     Indication: HEPATITIS C
  2. PEG-INTRON [Suspect]
     Indication: HEPATITIS C

REACTIONS (1)
  - LIVER SARCOIDOSIS [None]
